FAERS Safety Report 25734408 (Version 1)
Quarter: 2025Q3

REPORT INFORMATION
  Report Type: Spontaneous
  Country: US (occurrence: None)
  Receive Date: 20250827
  Receipt Date: 20250827
  Transmission Date: 20251021
  Serious: Yes (Hospitalization)
  Sender: FDA-CTU
  Company Number: None

PATIENT
  Sex: Female

DRUGS (3)
  1. NEULASTA [Suspect]
     Active Substance: PEGFILGRASTIM
     Indication: Drug therapy
     Dosage: OTHER QUANTITY : INJECT 1 SYRINGE;?FREQUENCY : AS DIRECTED;?
     Route: 058
     Dates: start: 20250805
  2. ONDANSETRON [Concomitant]
     Active Substance: ONDANSETRON
  3. PROCHLORPER [Concomitant]

REACTIONS (2)
  - Sepsis [None]
  - Therapy interrupted [None]
